FAERS Safety Report 15330940 (Version 3)
Quarter: 2019Q2

REPORT INFORMATION
  Report Type: Spontaneous
  Country: US (occurrence: US)
  Receive Date: 20180829
  Receipt Date: 20190523
  Transmission Date: 20190711
  Serious: No
  Sender: FDA-Public Use
  Company Number: US-PFIZER INC-2018347565

PATIENT
  Age: 71 Year
  Sex: Female
  Weight: 74 kg

DRUGS (8)
  1. IBRANCE [Suspect]
     Active Substance: PALBOCICLIB
     Dosage: 75 MG, CYCLIC (TAKING 21 DAYS 75 MGS OFF 7)
     Route: 048
     Dates: start: 2018
  2. CALCIUM + VIT D [Concomitant]
     Active Substance: CALCIUM\VITAMIN D
     Dosage: UNK, DAILY
  3. VITAMIN C [Concomitant]
     Active Substance: ASCORBIC ACID
     Dosage: UNK, DAILY
  4. LETROZOLE. [Concomitant]
     Active Substance: LETROZOLE
     Indication: HORMONE THERAPY
     Dosage: 2.5 MG, 1X/DAY
  5. LETROZOLE. [Concomitant]
     Active Substance: LETROZOLE
     Dosage: UNK, DAILY (LETROZOLE 125 EACH DAY)
     Dates: start: 201806
  6. IBRANCE [Suspect]
     Active Substance: PALBOCICLIB
     Dosage: 100 MG, CYCLIC QTY21 ONCE DAILY
     Route: 048
     Dates: start: 2018
  7. IRON [Concomitant]
     Active Substance: IRON
     Dosage: UNK , ALTERNATE DAY, [EVERY OTHER DAY]
  8. IBRANCE [Suspect]
     Active Substance: PALBOCICLIB
     Indication: BREAST CANCER STAGE IV
     Dosage: 125 MG, ONCE A DAY FOR 21 DAYS
     Route: 048
     Dates: start: 2018

REACTIONS (8)
  - Mean cell haemoglobin increased [Unknown]
  - White blood cell count decreased [Unknown]
  - Neutrophil count decreased [Unknown]
  - Product dose omission [Unknown]
  - Mean cell volume increased [Unknown]
  - Mean platelet volume decreased [Unknown]
  - Red blood cell count decreased [Unknown]
  - Blood count abnormal [Recovering/Resolving]

NARRATIVE: CASE EVENT DATE: 20190514
